FAERS Safety Report 15580803 (Version 1)
Quarter: 2018Q4

REPORT INFORMATION
  Report Type: Spontaneous
  Country: PT (occurrence: PT)
  Receive Date: 20181102
  Receipt Date: 20181102
  Transmission Date: 20190205
  Serious: Yes (Other)
  Sender: FDA-Public Use
  Company Number: PT-GILEAD-2018-0364962

PATIENT
  Age: 80 Year
  Sex: Female

DRUGS (6)
  1. RITUXIMAB. [Concomitant]
     Active Substance: RITUXIMAB
     Dosage: UNK
     Dates: start: 201710, end: 201807
  2. CARVEDILOL. [Concomitant]
     Active Substance: CARVEDILOL
  3. ZYDELIG [Suspect]
     Active Substance: IDELALISIB
     Indication: CHRONIC LYMPHOCYTIC LEUKAEMIA
     Dosage: UNK
     Route: 065
     Dates: start: 201710, end: 201808
  4. APIXABAN [Concomitant]
     Active Substance: APIXABAN
     Dosage: ^2.5 2ID^
  5. FUROSEMIDE. [Concomitant]
     Active Substance: FUROSEMIDE
  6. DIGOXIN. [Concomitant]
     Active Substance: DIGOXIN

REACTIONS (5)
  - Fall [Unknown]
  - Spinal compression fracture [Unknown]
  - Pyelonephritis [Unknown]
  - General physical health deterioration [Unknown]
  - Drug ineffective [Recovered/Resolved]
